FAERS Safety Report 4974493-5 (Version None)
Quarter: 2006Q2

REPORT INFORMATION
  Report Type: 
  Country: None (occurrence: None)
  Receive Date: 20060410
  Receipt Date: 20060328
  Transmission Date: 20061013
  Serious: Yes (Other)
  Sender: FDA-Public Use
  Company Number: 2006011816

PATIENT
  Age: 3 Year
  Sex: Female
  Weight: 19.6 kg

DRUGS (1)
  1. GENOTROPIN [Suspect]
     Indication: PRADER-WILLI SYNDROME
     Dosage: 4 MG, SUBCUTANEOUS
     Route: 058
     Dates: start: 20040208

REACTIONS (2)
  - SLEEP APNOEA SYNDROME [None]
  - WEIGHT INCREASED [None]
